FAERS Safety Report 24655454 (Version 1)
Quarter: 2024Q4

REPORT INFORMATION
  Report Type: Spontaneous
  Country: US (occurrence: US)
  Receive Date: 20241123
  Receipt Date: 20241123
  Transmission Date: 20250115
  Serious: Yes (Other)
  Sender: MERCK
  Company Number: US-009507513-2411USA007075

PATIENT
  Sex: Female

DRUGS (1)
  1. DIFICID [Suspect]
     Active Substance: FIDAXOMICIN
     Indication: Clostridium difficile infection
     Dosage: 200 MILLIGRAM, BID
     Route: 048

REACTIONS (4)
  - Clostridium difficile colitis [Unknown]
  - Feeding disorder [Unknown]
  - Fluid intake reduced [Unknown]
  - Drug ineffective [Unknown]
